FAERS Safety Report 4885824-9 (Version None)
Quarter: 2006Q1

REPORT INFORMATION
  Report Type: 
  Country: None (occurrence: None)
  Receive Date: 20060120
  Receipt Date: 20060110
  Transmission Date: 20060701
  Serious: Yes (Other)
  Sender: FDA-Public Use
  Company Number: PHEH2006US00749

PATIENT
  Age: 23 Year
  Sex: Female

DRUGS (1)
  1. DESFERAL [Suspect]
     Indication: BLOOD IRON INCREASED
     Dates: end: 20051201

REACTIONS (1)
  - HEPATOMEGALY [None]
